FAERS Safety Report 12140448 (Version 1)
Quarter: 2016Q1

REPORT INFORMATION
  Report Type: Spontaneous
  Country: US (occurrence: US)
  Receive Date: 20160303
  Receipt Date: 20160303
  Transmission Date: 20160526
  Serious: Yes (Other)
  Sender: FDA-Public Use
  Company Number: US-SA-2016SA040456

PATIENT
  Sex: Female

DRUGS (1)
  1. ICY HOT [Suspect]
     Active Substance: MENTHOL\METHYL SALICYLATE
     Route: 065

REACTIONS (5)
  - Multiple sclerosis [Unknown]
  - Drug ineffective [Unknown]
  - Stenosis [Unknown]
  - Rotator cuff syndrome [Unknown]
  - Arthritis [Unknown]
